FAERS Safety Report 6894904-8 (Version None)
Quarter: 2010Q3

REPORT INFORMATION
  Report Type: 
  Country: None (occurrence: None)
  Receive Date: 20100802
  Receipt Date: 20100721
  Transmission Date: 20110219
  Serious: Yes (Death)
  Sender: FDA-Public Use
  Company Number: PHHY2010US48434

PATIENT
  Sex: Female
  Weight: 55.329 kg

DRUGS (1)
  1. EXJADE [Suspect]
     Indication: NEOPLASM
     Dosage: 250 MG DAILY
     Route: 048
     Dates: start: 20090129

REACTIONS (1)
  - PNEUMONIA [None]
